FAERS Safety Report 10792012 (Version 1)
Quarter: 2015Q1

REPORT INFORMATION
  Report Type: Spontaneous
  Country: IN (occurrence: None)
  Receive Date: 20150211
  Receipt Date: 20150211
  Transmission Date: 20150721
  Serious: Yes (Other)
  Sender: FDA-Public Use
  Company Number: COR_00244_2015

PATIENT
  Age: 46 Year
  Sex: Male

DRUGS (2)
  1. CISPLATIN. [Concomitant]
     Active Substance: CISPLATIN
  2. ETOPOSIDE (ETOPOSIDE) [Suspect]
     Active Substance: ETOPOSIDE
     Indication: TESTIS CANCER
     Dosage: FOUR CYCLES, 100 MG/M2 FOR 5 DAYS EVERY 3 WEEKS, CUMULATIVE DOSE = 2000 MG/M2

REACTIONS (3)
  - Acute coronary syndrome [None]
  - Pulmonary oedema [None]
  - Acute promyelocytic leukaemia [None]
